FAERS Safety Report 11921971 (Version 1)
Quarter: 2016Q1

REPORT INFORMATION
  Report Type: Spontaneous
  Country: DE (occurrence: DE)
  Receive Date: 20160115
  Receipt Date: 20160115
  Transmission Date: 20160526
  Serious: Yes (Hospitalization, Other)
  Sender: FDA-Public Use
  Company Number: DE-UCBSA-2016001349

PATIENT
  Age: 14 Year
  Sex: Female
  Weight: 65 kg

DRUGS (1)
  1. KEPPRA [Suspect]
     Active Substance: LEVETIRACETAM
     Indication: PRODUCT USED FOR UNKNOWN INDICATION
     Dosage: 25000 MG, TOTAL (09-JAN-2016:30 TAB + 10-JAN-2016:20 TAB)
     Dates: start: 20160109, end: 20160110

REACTIONS (3)
  - Suicide attempt [Unknown]
  - Sinus arrhythmia [Unknown]
  - Dizziness [Unknown]

NARRATIVE: CASE EVENT DATE: 201601
